FAERS Safety Report 5813044-X (Version None)
Quarter: 2008Q3

REPORT INFORMATION
  Report Type: 
  Country: None (occurrence: None)
  Receive Date: 20080717
  Receipt Date: 20071115
  Transmission Date: 20090109
  Serious: No
  Sender: FDA-Public Use
  Company Number: A0694677A

PATIENT
  Age: 54 Year
  Sex: Female

DRUGS (2)
  1. NICORETTE [Suspect]
     Dates: start: 20071113
  2. COMMIT [Suspect]
     Dates: start: 20071014, end: 20071113

REACTIONS (2)
  - CONSTIPATION [None]
  - FOOD CRAVING [None]
